FAERS Safety Report 8119242-7 (Version None)
Quarter: 2012Q1

REPORT INFORMATION
  Report Type: 
  Country: None (occurrence: None)
  Receive Date: 20120207
  Receipt Date: 20120206
  Transmission Date: 20120608
  Serious: Yes (Disabling)
  Sender: FDA-Public Use
  Company Number: NL-ROCHE-1032619

PATIENT
  Sex: Female
  Weight: 106 kg

DRUGS (6)
  1. VINCRISTINE [Suspect]
     Indication: B-CELL LYMPHOMA
     Dates: end: 20110801
  2. CYCLOPHOSPHAMIDE [Suspect]
     Indication: B-CELL LYMPHOMA
     Dates: end: 20110801
  3. FILGRASTIM [Suspect]
     Indication: B-CELL LYMPHOMA
     Dates: end: 20110801
  4. PREDNISONE TAB [Suspect]
     Indication: B-CELL LYMPHOMA
     Dates: end: 20110801
  5. MABTHERA [Suspect]
     Indication: B-CELL LYMPHOMA
     Route: 042
     Dates: start: 20091103, end: 20110810
  6. DOXORUBICIN HCL [Suspect]
     Indication: B-CELL LYMPHOMA
     Dates: end: 20110801

REACTIONS (1)
  - VISION BLURRED [None]
